FAERS Safety Report 9235986 (Version 1)
Quarter: 2013Q2

REPORT INFORMATION
  Report Type: Spontaneous
  Country: US (occurrence: US)
  Receive Date: 20130417
  Receipt Date: 20130417
  Transmission Date: 20140414
  Serious: Yes (Hospitalization, Other)
  Sender: FDA-Public Use
  Company Number: US-BRISTOL-MYERS SQUIBB COMPANY-18772228

PATIENT
  Age: 61 Year
  Sex: Female

DRUGS (3)
  1. BYDUREON [Suspect]
     Dates: start: 20130305
  2. METFORMIN HCL [Suspect]
  3. GLYBURIDE [Concomitant]

REACTIONS (1)
  - Pancreatitis [Recovered/Resolved]
